FAERS Safety Report 23682614 (Version 1)
Quarter: 2024Q1

REPORT INFORMATION
  Report Type: Spontaneous
  Country: IT (occurrence: IT)
  Receive Date: 20240328
  Receipt Date: 20240328
  Transmission Date: 20240410
  Serious: Yes (Hospitalization)
  Sender: FDA-Public Use
  Company Number: IT-MYLANLABS-2024M1028411

PATIENT
  Age: 15 Year
  Sex: Male

DRUGS (3)
  1. FORMOTEROL [Suspect]
     Active Substance: FORMOTEROL
     Indication: Asthma
     Dosage: 20 MICROGRAM, QD; RESPIRATORY INHALATION
     Route: 055
  2. FLUTICASONE [Suspect]
     Active Substance: FLUTICASONE
     Indication: Asthma
     Dosage: 500 MICROGRAM, QD; RESPIRATORY INHALATION
     Route: 055
  3. SOMATROPIN [Concomitant]
     Active Substance: SOMATROPIN
     Indication: Growth hormone deficiency
     Dosage: UNK
     Route: 065

REACTIONS (1)
  - Drug ineffective [Unknown]
